FAERS Safety Report 20796000 (Version 2)
Quarter: 2022Q2

REPORT INFORMATION
  Report Type: Report from Study
  Country: SZ (occurrence: SZ)
  Receive Date: 20220506
  Receipt Date: 20220511
  Transmission Date: 20220721
  Serious: Yes (Congenital Anomaly, Other)
  Sender: FDA-Public Use
  Company Number: SZ-MYLANLABS-2022M1032299

PATIENT
  Sex: Female

DRUGS (5)
  1. TENOFOVIR DISOPROXIL [Suspect]
     Active Substance: TENOFOVIR DISOPROXIL
     Indication: HIV infection
     Dosage: UNK
     Route: 064
  2. LOPINAVIR\RITONAVIR [Suspect]
     Active Substance: LOPINAVIR\RITONAVIR
     Indication: Product used for unknown indication
     Dosage: UNK
     Route: 064
  3. LAMIVUDINE [Suspect]
     Active Substance: LAMIVUDINE
     Indication: Product used for unknown indication
     Dosage: UNK
     Route: 064
  4. TENOFOVIR DISOPROXIL FUMARATE [Suspect]
     Active Substance: TENOFOVIR DISOPROXIL FUMARATE
     Indication: Product used for unknown indication
     Dosage: UNK
     Route: 064
  5. ZIDOVUDINE [Suspect]
     Active Substance: ZIDOVUDINE
     Indication: Product used for unknown indication
     Dosage: 2 MILLIGRAM/KILOGRAM
     Route: 064

REACTIONS (8)
  - Meningomyelocele [Recovered/Resolved]
  - Neonatal respiratory distress syndrome [Unknown]
  - Necrotising colitis [Recovered/Resolved]
  - Arnold-Chiari malformation [Unknown]
  - Macrocephaly [Unknown]
  - Premature baby [Unknown]
  - Hyperbilirubinaemia neonatal [Unknown]
  - Foetal exposure during pregnancy [Recovered/Resolved]
